FAERS Safety Report 5266833-7 (Version None)
Quarter: 2007Q1

REPORT INFORMATION
  Report Type: 
  Country: None (occurrence: None)
  Receive Date: 20061213
  Receipt Date: 20040803
  Transmission Date: 20070707
  Serious: No
  Sender: FDA-Public Use
  Company Number: 2004UW14452

PATIENT
  Age: 46 Year
  Sex: Female
  Weight: 62.5964 kg

DRUGS (4)
  1. TAMOXIFEN CITRATE [Suspect]
     Indication: BREAST CANCER STAGE I
     Dosage: 20 MG DAILY PO
     Route: 048
     Dates: start: 20040517, end: 20040614
  2. FLUOXETINE HCL [Concomitant]
  3. BENZTROPINE MESYLATE [Concomitant]
  4. PERPHENAZINE [Concomitant]

REACTIONS (2)
  - MACULOPATHY [None]
  - VISION BLURRED [None]
